FAERS Safety Report 11501965 (Version 1)
Quarter: 2015Q3

REPORT INFORMATION
  Report Type: Other
  Country: None (occurrence: ES)
  Receive Date: 20150914
  Receipt Date: 20150914
  Transmission Date: 20151125
  Serious: Yes (Other)
  Sender: FDA-Public Use
  Company Number: ES-MERCK KGAA-1041914

PATIENT

DRUGS (1)
  1. NOVOTHYROX [Suspect]
     Active Substance: LEVOTHYROXINE SODIUM

REACTIONS (4)
  - Drug ineffective [None]
  - Helicobacter infection [None]
  - Vitamin B12 deficiency [None]
  - Malabsorption [None]
